FAERS Safety Report 10551403 (Version 2)
Quarter: 2015Q1

REPORT INFORMATION
  Report Type: Spontaneous
  Country: US (occurrence: None)
  Receive Date: 20141020
  Receipt Date: 20150120
  Transmission Date: 20150720
  Serious: No
  Sender: FDA-Public Use
  Company Number: AEGR000707

PATIENT
  Age: 60 Year
  Sex: Male
  Weight: 99.3 kg

DRUGS (11)
  1. CO-ENZYME Q10 (UBIDECARENONE) [Concomitant]
  2. LOSARTAN (LOSARTAN POTASSIUM) [Concomitant]
  3. NITROSTAT (GLYCERYL TRINITRATE) [Concomitant]
  4. ZETIA [Concomitant]
     Active Substance: EZETIMIBE
  5. CARVEDILOL. [Concomitant]
     Active Substance: CARVEDILOL
  6. CHLOR-TRIMETON (CHLORPHENAMINE MALEATE) [Concomitant]
  7. JUXTAPID [Suspect]
     Active Substance: LOMITAPIDE MESYLATE
     Indication: TYPE IIA HYPERLIPIDAEMIA
     Route: 048
     Dates: start: 20140425, end: 20140702
  8. ALCOHOL (ETHANOL) [Suspect]
     Active Substance: ALCOHOL
     Indication: PRODUCT USED FOR UNKNOWN INDICATION
  9. ASPIRIN (ACETYLSALICYLIC ACID) [Concomitant]
     Active Substance: ASPIRIN
  10. IMDUR (ISOSORBIDE MONONITRATE) [Concomitant]
  11. LIPITOR [Concomitant]
     Active Substance: ATORVASTATIN CALCIUM

REACTIONS (1)
  - Hepatic enzyme increased [None]

NARRATIVE: CASE EVENT DATE: 20140820
